FAERS Safety Report 10058142 (Version 2)
Quarter: 2014Q2

REPORT INFORMATION
  Report Type: Spontaneous
  Country: US (occurrence: US)
  Receive Date: 20140404
  Receipt Date: 20140429
  Transmission Date: 20141212
  Serious: No
  Sender: FDA-Public Use
  Company Number: US-PFIZER INC-2014091878

PATIENT
  Age: 74 Year
  Sex: Male

DRUGS (15)
  1. VIAGRA [Suspect]
     Indication: ERECTILE DYSFUNCTION
     Dosage: 100 MG, UNK
  2. CARDIZEM [Concomitant]
     Indication: HEART RATE INCREASED
     Dosage: 60 MG, 2X/DAY
  3. LANOXIN [Concomitant]
     Indication: HEART RATE ABNORMAL
     Dosage: 0.125 MG/0.25 MG ONCE DAILY
  4. LASIX [Concomitant]
     Indication: DIURETIC THERAPY
     Dosage: 5 MG, 1X/DAY
  5. LASIX [Concomitant]
     Indication: CARDIAC FAILURE CONGESTIVE
  6. LISINOPRIL [Concomitant]
     Indication: BLOOD PRESSURE ABNORMAL
     Dosage: 10 MG, 1X/DAY
  7. METOPROLOL [Concomitant]
     Indication: CARDIAC DISORDER
     Dosage: 100 MG, 2X/DAY
  8. METOPROLOL [Concomitant]
     Indication: BLOOD PRESSURE ABNORMAL
  9. METOPROLOL [Concomitant]
     Indication: PULSE ABNORMAL
  10. PRADAXA [Concomitant]
     Indication: ANTICOAGULANT THERAPY
     Dosage: 150 MG, 2X/DAY
  11. COLCRYS [Concomitant]
     Indication: GOUT
  12. LOPID [Concomitant]
     Indication: BLOOD CHOLESTEROL ABNORMAL
     Dosage: 600 MG, 2X/DAY
  13. VITAMIN D [Concomitant]
     Dosage: 1000 MG, 1X/DAY
  14. TYLENOL [Concomitant]
     Indication: PAIN
     Dosage: 1500 MG, AS NEEDED
  15. CEPHALEXIN [Concomitant]
     Dosage: 2000 MG

REACTIONS (1)
  - Drug ineffective [Unknown]
